FAERS Safety Report 8888559 (Version 1)
Quarter: 2012Q4

REPORT INFORMATION
  Report Type: 
  Country: PK (occurrence: PK)
  Receive Date: 20121106
  Receipt Date: 20121106
  Transmission Date: 20130627
  Serious: Yes (Other)
  Sender: FDA-Public Use
  Company Number: PHHY2012PK094929

PATIENT
  Age: 30 Year
  Sex: Male

DRUGS (4)
  1. MYFORTIC [Suspect]
     Indication: IMMUNOSUPPRESSION
     Dosage: 720 mg, BID
     Route: 048
     Dates: start: 20121015
  2. MYFORTIC [Suspect]
     Dosage: 360 mg, BID
  3. IMURAN [Concomitant]
     Indication: IMMUNOSUPPRESSION
     Dosage: 100 mg, BID
     Route: 048
     Dates: start: 20121015, end: 20121025
  4. TACROLIMUS [Concomitant]

REACTIONS (2)
  - Epistaxis [Recovered/Resolved]
  - Graft dysfunction [Recovering/Resolving]
